FAERS Safety Report 4413943-X (Version None)
Quarter: 2004Q3

REPORT INFORMATION
  Report Type: 
  Country: None (occurrence: None)
  Receive Date: 20040728
  Receipt Date: 20040715
  Transmission Date: 20050211
  Serious: Yes (Hospitalization, Other)
  Sender: FDA-Public Use
  Company Number: 2004045232

PATIENT
  Age: 38 Year
  Sex: Female

DRUGS (6)
  1. ZYRTEC [Suspect]
     Indication: NEURODERMATITIS
     Dosage: 10 MG (1 IN 1 D), ORAL
     Route: 048
     Dates: start: 20021114, end: 20040409
  2. POTASSIUM CITRATE [Concomitant]
  3. HYDROXYZINE EMBONATE [Concomitant]
  4. FLUDROXYCORTIDE [Concomitant]
  5. CLOBETASOL PROPIONATE [Concomitant]
  6. DICLOFENAC SODIUM [Concomitant]

REACTIONS (10)
  - ALANINE AMINOTRANSFERASE INCREASED [None]
  - BLOOD ALKALINE PHOSPHATASE INCREASED [None]
  - BLOOD LACTATE DEHYDROGENASE INCREASED [None]
  - EOSINOPHILIA [None]
  - GAMMA-GLUTAMYLTRANSFERASE INCREASED [None]
  - HEPATIC FUNCTION ABNORMAL [None]
  - NASAL CONGESTION [None]
  - NASAL POLYPECTOMY [None]
  - PYREXIA [None]
  - TREATMENT NONCOMPLIANCE [None]
